FAERS Safety Report 14112535 (Version 20)
Quarter: 2019Q2

REPORT INFORMATION
  Report Type: Report from Study
  Country: US (occurrence: US)
  Receive Date: 20171020
  Receipt Date: 20190614
  Transmission Date: 20190711
  Serious: Yes (Hospitalization, Other)
  Sender: FDA-Public Use
  Company Number: US-MALLINCKRODT-T201703249

PATIENT
  Sex: Female

DRUGS (17)
  1. REPOSITORY CORTICOTROPIN INJECTION [Suspect]
     Active Substance: CORTICOTROPIN
     Dosage: 80 UNITS / 1 ML, 2 TIMES PER WEEK WEDNESDAYS AND SATURDAYS
     Route: 058
  2. REPOSITORY CORTICOTROPIN INJECTION [Suspect]
     Active Substance: CORTICOTROPIN
     Indication: SARCOIDOSIS
     Dosage: 80 UNITS/1 ML, 2 TIMES PER WEEK, (WEDNESDAY AND SATURDAY)
     Route: 058
     Dates: start: 20170719
  3. REPOSITORY CORTICOTROPIN INJECTION [Suspect]
     Active Substance: CORTICOTROPIN
     Dosage: 80 UNITS/1 ML, 2 TIMES PER WEEK, (WEDNESDAY AND SATURDAY)
     Route: 058
  4. REPOSITORY CORTICOTROPIN INJECTION [Suspect]
     Active Substance: CORTICOTROPIN
     Dosage: 80 UNITS / 1 ML 2 TIMES PER WEEK  WEDNESDAY AND SATURDAY
     Route: 058
  5. PLAQUENIL [Suspect]
     Active Substance: HYDROXYCHLOROQUINE SULFATE
     Indication: SARCOIDOSIS
     Dosage: UNK
     Route: 065
  6. REMERON [Concomitant]
     Active Substance: MIRTAZAPINE
     Indication: PRODUCT USED FOR UNKNOWN INDICATION
     Dosage: UNK
     Route: 065
  7. REPOSITORY CORTICOTROPIN INJECTION [Suspect]
     Active Substance: CORTICOTROPIN
     Dosage: 80 UNITS / 1 ML 2 TIMES PER WEEK  WEDNESDAY AND SATURDAY
     Route: 058
  8. PREDNISONE. [Suspect]
     Active Substance: PREDNISONE
     Indication: RASH
     Dosage: 20 MG, ONE WEEK
     Route: 065
     Dates: end: 20180723
  9. LEVAQUIN [Concomitant]
     Active Substance: LEVOFLOXACIN
     Indication: PRODUCT USED FOR UNKNOWN INDICATION
     Dosage: FOR 14 DAYS
     Route: 065
  10. REPOSITORY CORTICOTROPIN INJECTION [Suspect]
     Active Substance: CORTICOTROPIN
     Dosage: 80 UNITS/1 ML, 2 TIMES PER WEEK, (WEDNESDAY AND SATURDAY)
     Route: 058
  11. REPOSITORY CORTICOTROPIN INJECTION [Suspect]
     Active Substance: CORTICOTROPIN
     Dosage: 80 UNITS / 1 ML, 2 TIMES PER WEEK WEDNESDAYS AND SATURDAYS
     Route: 058
  12. REPOSITORY CORTICOTROPIN INJECTION [Suspect]
     Active Substance: CORTICOTROPIN
     Dosage: 80 UNITS / 1 ML 2 TIMES PER WEEK  WEDNESDAY AND SATURDAY
     Route: 058
  13. REPOSITORY CORTICOTROPIN INJECTION [Suspect]
     Active Substance: CORTICOTROPIN
     Dosage: 80 UNITS/1 ML, 2 TIMES PER WEEK, (WEDNESDAY AND SATURDAY)
     Route: 058
  14. REPOSITORY CORTICOTROPIN INJECTION [Suspect]
     Active Substance: CORTICOTROPIN
     Dosage: 80 UNITS/1 ML, 2 TIMES PER WEEK, (WEDNESDAY AND SATURDAY)
     Route: 058
  15. REPOSITORY CORTICOTROPIN INJECTION [Suspect]
     Active Substance: CORTICOTROPIN
     Dosage: 80 UNITS / 1 ML, 2 TIMES PER WEEK (WEDNESDAYS AND SATURDAYS)
     Route: 058
  16. REPOSITORY CORTICOTROPIN INJECTION [Suspect]
     Active Substance: CORTICOTROPIN
     Dosage: 80 UNITS / 1 ML 2 TIMES PER WEEK  WEDNESDAY AND SATURDAY
     Route: 058
  17. MORPHINE [Suspect]
     Active Substance: MORPHINE
     Indication: PURPURA
     Dosage: UNK
     Route: 065

REACTIONS (68)
  - Influenza [Unknown]
  - Tremor [Not Recovered/Not Resolved]
  - Malaise [Unknown]
  - Gait disturbance [Not Recovered/Not Resolved]
  - Hair texture abnormal [Unknown]
  - Abdominal discomfort [Unknown]
  - Nasopharyngitis [Not Recovered/Not Resolved]
  - Purpura [Unknown]
  - Sarcoidosis [Unknown]
  - Gastroenteritis viral [Unknown]
  - Dyspnoea [Unknown]
  - Aphonia [Not Recovered/Not Resolved]
  - Kyphosis [Unknown]
  - Feeling abnormal [Unknown]
  - Weight increased [Not Recovered/Not Resolved]
  - Bronchitis [Not Recovered/Not Resolved]
  - Fatigue [Not Recovered/Not Resolved]
  - Musculoskeletal pain [Unknown]
  - Food poisoning [Recovering/Resolving]
  - Fall [Unknown]
  - Panic attack [Unknown]
  - Chemical burn [Unknown]
  - Peripheral swelling [Not Recovered/Not Resolved]
  - Anxiety [Not Recovered/Not Resolved]
  - Pulmonary fibrosis [Not Recovered/Not Resolved]
  - Loss of consciousness [Not Recovered/Not Resolved]
  - Umbilical haemorrhage [Unknown]
  - Neuralgia [Not Recovered/Not Resolved]
  - Dizziness [Unknown]
  - Rash pustular [Not Recovered/Not Resolved]
  - Confusional state [Unknown]
  - Muscular weakness [Unknown]
  - Staphylococcal infection [Unknown]
  - Herpes zoster [Unknown]
  - Weight decreased [Unknown]
  - Contusion [Unknown]
  - Skin burning sensation [Unknown]
  - Visual impairment [Not Recovered/Not Resolved]
  - Asthenia [Not Recovered/Not Resolved]
  - Pruritus [Unknown]
  - Memory impairment [Unknown]
  - Pollakiuria [Unknown]
  - Dry skin [Unknown]
  - Body temperature increased [Unknown]
  - Immunodeficiency [Not Recovered/Not Resolved]
  - Pulmonary oedema [Unknown]
  - Bone pain [Not Recovered/Not Resolved]
  - Bradykinesia [Not Recovered/Not Resolved]
  - Scab [Unknown]
  - Pain in extremity [Unknown]
  - Vein disorder [Unknown]
  - Injection site mass [Unknown]
  - Rash [Not Recovered/Not Resolved]
  - Wrong technique in product usage process [Unknown]
  - Incorrect dose administered [Not Recovered/Not Resolved]
  - Laryngeal papilloma [Not Recovered/Not Resolved]
  - Folliculitis [Unknown]
  - Hypersensitivity [Not Recovered/Not Resolved]
  - Nervousness [Unknown]
  - Pneumonia [Recovering/Resolving]
  - Condition aggravated [Unknown]
  - Cataract [Not Recovered/Not Resolved]
  - Somnolence [Unknown]
  - Logorrhoea [Not Recovered/Not Resolved]
  - Blister [Unknown]
  - Muscle spasms [Unknown]
  - Injection site haemorrhage [Unknown]
  - Insomnia [Not Recovered/Not Resolved]

NARRATIVE: CASE EVENT DATE: 2018
